FAERS Safety Report 5390791-8 (Version None)
Quarter: 2007Q3

REPORT INFORMATION
  Report Type: 
  Country: None (occurrence: None)
  Receive Date: 20070718
  Receipt Date: 20070711
  Transmission Date: 20080115
  Serious: Yes (Death)
  Sender: FDA-Public Use
  Company Number: ES-MERCK-0707ESP00018

PATIENT
  Age: 84 Year
  Sex: Female

DRUGS (2)
  1. PRIMAXIN [Suspect]
     Indication: SKIN ULCER
     Route: 042
     Dates: start: 20060919, end: 20060929
  2. PRIMAXIN [Suspect]
     Route: 042
     Dates: start: 20060919, end: 20060929

REACTIONS (2)
  - CONVULSION [None]
  - DEATH [None]
